FAERS Safety Report 16827361 (Version 1)
Quarter: 2019Q3

REPORT INFORMATION
  Report Type: Spontaneous
  Country: IT (occurrence: IT)
  Receive Date: 20190919
  Receipt Date: 20190919
  Transmission Date: 20191005
  Serious: Yes (Hospitalization)
  Sender: FDA-Public Use
  Company Number: IT-ASTRAZENECA-2019SF30174

PATIENT
  Age: 44 Year
  Sex: Female

DRUGS (1)
  1. SEROQUEL [Suspect]
     Active Substance: QUETIAPINE FUMARATE
     Indication: PRODUCT ADMINISTRATION ERROR
     Dosage: 2400.0MG ONCE/SINGLE ADMINISTRATION
     Route: 048
     Dates: start: 20190809, end: 20190809

REACTIONS (3)
  - Depressed level of consciousness [Unknown]
  - Dystonia [Unknown]
  - Medication error [Unknown]

NARRATIVE: CASE EVENT DATE: 20190809
